FAERS Safety Report 19418416 (Version 1)
Quarter: 2021Q2

REPORT INFORMATION
  Report Type: Spontaneous
  Country: US (occurrence: US)
  Receive Date: 20210615
  Receipt Date: 20210615
  Transmission Date: 20210717
  Serious: No
  Sender: FDA-Public Use
  Company Number: US-GLOBAL BLOOD THERAPEUTICS INC-US-GBT-21-01252

PATIENT
  Age: 46 Year
  Sex: Male

DRUGS (3)
  1. OXBRYTA [Suspect]
     Active Substance: VOXELOTOR
     Indication: SICKLE CELL DISEASE
     Route: 048
     Dates: start: 20210401, end: 20210402
  2. OXBRYTA [Suspect]
     Active Substance: VOXELOTOR
     Route: 048
     Dates: start: 20210403
  3. LISINOPRIL. [Concomitant]
     Active Substance: LISINOPRIL
     Indication: PROTEINURIA
     Route: 048
     Dates: start: 2019

REACTIONS (5)
  - Diarrhoea [Recovered/Resolved]
  - Product dose omission issue [Unknown]
  - Abdominal pain [Recovered/Resolved]
  - Faeces soft [Not Recovered/Not Resolved]
  - Abdominal discomfort [Recovered/Resolved]

NARRATIVE: CASE EVENT DATE: 202104
